FAERS Safety Report 4906329-2 (Version None)
Quarter: 2006Q1

REPORT INFORMATION
  Report Type: 
  Country: None (occurrence: None)
  Receive Date: 20060209
  Receipt Date: 20060127
  Transmission Date: 20060701
  Serious: Yes (Other)
  Sender: FDA-Public Use
  Company Number: CH-JNJFOC-20060105919

PATIENT
  Sex: Female
  Weight: 50 kg

DRUGS (2)
  1. ORTHO EVRA [Suspect]
     Indication: CONTRACEPTION
     Dosage: 6 MONTHS
     Route: 062
  2. IMIGRAN [Concomitant]
     Indication: MIGRAINE
     Dosage: 2-3 TIMES PER MONTH
     Route: 048

REACTIONS (6)
  - ABORTION SPONTANEOUS [None]
  - DRUG EXPOSURE DURING PREGNANCY [None]
  - ECTOPIC PREGNANCY [None]
  - METRORRHAGIA [None]
  - OCCUPATIONAL EXPOSURE TO TOXIC AGENT [None]
  - UNINTENDED PREGNANCY [None]
